FAERS Safety Report 17007827 (Version 2)
Quarter: 2020Q1

REPORT INFORMATION
  Report Type: Spontaneous
  Country: US (occurrence: US)
  Receive Date: 20191108
  Receipt Date: 20200102
  Transmission Date: 20200409
  Serious: No
  Sender: FDA-Public Use
  Company Number: US-CELGENEUS-USA-20191100146

PATIENT
  Sex: Male

DRUGS (1)
  1. OTEZLA [Suspect]
     Active Substance: APREMILAST
     Indication: PSORIASIS
     Dosage: 60 MILLIGRAM
     Route: 048
     Dates: start: 20191001

REACTIONS (5)
  - Abdominal pain upper [Recovered/Resolved]
  - Diarrhoea [Recovering/Resolving]
  - Nausea [Recovering/Resolving]
  - Drug ineffective [Unknown]
  - Headache [Unknown]

NARRATIVE: CASE EVENT DATE: 2019
